FAERS Safety Report 15155901 (Version 1)
Quarter: 2018Q3

REPORT INFORMATION
  Report Type: Spontaneous
  Country: DE (occurrence: DE)
  Receive Date: 20180717
  Receipt Date: 20180717
  Transmission Date: 20181010
  Serious: Yes (Other)
  Sender: FDA-Public Use
  Company Number: DE-US WORLDMEDS, LLC-STA_00019560

PATIENT
  Age: 73 Year
  Sex: Female
  Weight: 170 kg

DRUGS (1)
  1. APOMORPHINE HYDROCHLORIDE [Suspect]
     Active Substance: APOMORPHINE HYDROCHLORIDE
     Indication: PARKINSON^S DISEASE
     Dosage: 9 A.M. TO 9 P.M
     Route: 058

REACTIONS (5)
  - Diarrhoea [Recovered/Resolved]
  - Syncope [Recovered/Resolved]
  - Alopecia [Recovered/Resolved]
  - Diplopia [Recovered/Resolved]
  - Oedema peripheral [Recovered/Resolved]

NARRATIVE: CASE EVENT DATE: 201203
